FAERS Safety Report 26110370 (Version 1)
Quarter: 2025Q4

REPORT INFORMATION
  Report Type: Report from Study
  Country: US (occurrence: US)
  Receive Date: 20251202
  Receipt Date: 20251202
  Transmission Date: 20260117
  Serious: Yes (Other)
  Sender: ABBVIE
  Company Number: US-ABBVIE-6568816

PATIENT
  Age: 45 Year
  Sex: Female

DRUGS (3)
  1. HUMIRA [Suspect]
     Active Substance: ADALIMUMAB
     Indication: Product used for unknown indication
     Route: 058
     Dates: start: 20160907, end: 202410
  2. HUMIRA [Suspect]
     Active Substance: ADALIMUMAB
     Route: 058
     Dates: end: 2025
  3. CORTISONE\HYDROCORTISONE [Concomitant]
     Active Substance: CORTISONE\HYDROCORTISONE
     Indication: Product used for unknown indication
     Dates: start: 2025

REACTIONS (4)
  - Device related infection [Not Recovered/Not Resolved]
  - Localised infection [Recovering/Resolving]
  - Limb reconstructive surgery [Recovering/Resolving]
  - Toe amputation [Unknown]

NARRATIVE: CASE EVENT DATE: 20241001
